FAERS Safety Report 10088768 (Version 2)
Quarter: 2014Q2

REPORT INFORMATION
  Report Type: Spontaneous
  Country: US (occurrence: US)
  Receive Date: 20140421
  Receipt Date: 20140508
  Transmission Date: 20141212
  Serious: No
  Sender: FDA-Public Use
  Company Number: US-BIOGENIDEC-2014BI033913

PATIENT
  Age: 62 Year
  Sex: Female

DRUGS (14)
  1. TECFIDERA [Suspect]
     Indication: MULTIPLE SCLEROSIS
     Route: 048
  2. TECFIDERA [Suspect]
     Indication: MULTIPLE SCLEROSIS
     Route: 048
     Dates: start: 20140407
  3. OXYBUTYNIN CHLORIDE [Concomitant]
  4. DICYCLOMINE HCL [Concomitant]
  5. TRAMADOL HCL [Concomitant]
  6. VITAMIN B 12 [Concomitant]
  7. BENADRYL [Concomitant]
  8. IBUPROFEN [Concomitant]
  9. OMEPRAZOLE [Concomitant]
  10. ESTRADIOL [Concomitant]
  11. TRAZADONE [Concomitant]
  12. FLUOXETINE HCL [Concomitant]
  13. BACLOFEN [Concomitant]
  14. GABAPENTIN [Concomitant]

REACTIONS (6)
  - Mood swings [Unknown]
  - Ulcer [Recovered/Resolved]
  - Abdominal pain upper [Unknown]
  - Dyspepsia [Unknown]
  - Flushing [Recovered/Resolved]
  - Pruritus [Recovered/Resolved]
